FAERS Safety Report 4725244-0 (Version None)
Quarter: 2005Q3

REPORT INFORMATION
  Report Type: 
  Country: None (occurrence: None)
  Receive Date: 20050721
  Receipt Date: 20050608
  Transmission Date: 20060218
  Serious: No
  Sender: FDA-Public Use
  Company Number: 2005SP001310

PATIENT
  Age: 47 Year
  Sex: Female
  Weight: 127.0072 kg

DRUGS (5)
  1. LUNESTA [Suspect]
     Indication: INSOMNIA
     Dosage: 2 MG;HS;ORAL
     Route: 048
     Dates: start: 20050523
  2. MICARDIS [Concomitant]
  3. PREDNISONE [Concomitant]
  4. LASIX [Concomitant]
  5. PERCOCET [Concomitant]

REACTIONS (1)
  - DYSGEUSIA [None]
